FAERS Safety Report 15456109 (Version 4)
Quarter: 2018Q4

REPORT INFORMATION
  Report Type: Report from Study
  Country: US (occurrence: US)
  Receive Date: 20181002
  Receipt Date: 20181114
  Transmission Date: 20190204
  Serious: Yes (Death, Hospitalization)
  Sender: FDA-Public Use
  Company Number: US-ROCHE-2179857

PATIENT
  Age: 88 Year
  Sex: Male
  Weight: 62.6 kg

DRUGS (12)
  1. LOTREL (UNITED STATES) [Concomitant]
     Indication: HYPERTENSION
     Route: 065
     Dates: start: 20180124
  2. LASIX [Concomitant]
     Active Substance: FUROSEMIDE
     Indication: OEDEMA PERIPHERAL
     Route: 065
     Dates: start: 20180420
  3. ATEZOLIZUMAB. [Suspect]
     Active Substance: ATEZOLIZUMAB
     Indication: HEPATOCELLULAR CARCINOMA
     Dosage: ATEZOLIZUMAB, 1200 MG ADMINISTERED ON DAY 1 OF EACH 21 DAY CYCLE AS PER PROTOCOL.?DATE OF MOST RECEN
     Route: 042
     Dates: start: 20180406
  4. BEVACIZUMAB. [Suspect]
     Active Substance: BEVACIZUMAB
     Indication: HEPATOCELLULAR CARCINOMA
     Dosage: BEVACIZUMAB WILL BE ADMINISTERED BY IV, 15 MG/KG ON DAY 1 OF EACH 21 DAY CYCLE (AS PER PROTOCOL).?DA
     Route: 042
     Dates: start: 20180406
  5. ASPRIN [Concomitant]
     Active Substance: ASPIRIN
     Indication: PROPHYLAXIS
     Route: 065
     Dates: start: 20180124, end: 20180904
  6. OSCAL [Concomitant]
     Active Substance: CALCIUM CARBONATE
     Indication: NUTRITIONAL SUPPLEMENTATION
     Route: 065
     Dates: start: 20180302
  7. RISACAL-D [Concomitant]
     Indication: NUTRITIONAL SUPPLEMENTATION
     Route: 065
     Dates: start: 20180124
  8. CARDENE [Concomitant]
     Active Substance: NICARDIPINE HYDROCHLORIDE
     Route: 041
  9. FLOMAX [Concomitant]
     Active Substance: TAMSULOSIN HYDROCHLORIDE
     Indication: PROSTATOMEGALY
  10. IMODIUM [Concomitant]
     Active Substance: LOPERAMIDE HYDROCHLORIDE
     Indication: DIARRHOEA
     Route: 065
     Dates: start: 20180404
  11. NORVASC [Concomitant]
     Active Substance: AMLODIPINE BESYLATE
     Indication: HYPERTENSION
     Route: 065
     Dates: start: 20180108
  12. ALBUTEROL HFA [Concomitant]
     Active Substance: ALBUTEROL SULFATE
     Indication: PROPHYLAXIS

REACTIONS (1)
  - Subarachnoid haemorrhage [Fatal]

NARRATIVE: CASE EVENT DATE: 20180830
